FAERS Safety Report 11153812 (Version 1)
Quarter: 2015Q2

REPORT INFORMATION
  Report Type: Report from Study
  Country: US (occurrence: US)
  Receive Date: 20150602
  Receipt Date: 20150602
  Transmission Date: 20150821
  Serious: Yes (Other)
  Sender: FDA-Public Use
  Company Number: US-AMGEN-USASL2015052233

PATIENT
  Age: 35 Year
  Sex: Female

DRUGS (1)
  1. ENBREL [Suspect]
     Active Substance: ETANERCEPT
     Indication: RHEUMATOID ARTHRITIS
     Dosage: 25 MG, 2 TIMES/WK
     Route: 065
     Dates: start: 20030301

REACTIONS (11)
  - Lethargy [Not Recovered/Not Resolved]
  - Injection site pain [Recovered/Resolved]
  - Malaise [Recovered/Resolved]
  - Incorrect dosage administered [Recovered/Resolved]
  - Cervix carcinoma [Recovered/Resolved]
  - Arthralgia [Not Recovered/Not Resolved]
  - Pain in extremity [Not Recovered/Not Resolved]
  - Uterine mass [Recovered/Resolved]
  - Fatigue [Recovered/Resolved]
  - Bronchitis [Recovered/Resolved]
  - Joint stiffness [Not Recovered/Not Resolved]

NARRATIVE: CASE EVENT DATE: 2004
